FAERS Safety Report 5469913-6 (Version None)
Quarter: 2007Q3

REPORT INFORMATION
  Report Type: 
  Country: None (occurrence: None)
  Receive Date: 20070927
  Receipt Date: 20070920
  Transmission Date: 20080115
  Serious: Yes (Other)
  Sender: FDA-Public Use
  Company Number: US-ELI_LILLY_AND_COMPANY-US200707001315

PATIENT
  Age: 41 Year
  Sex: Female

DRUGS (3)
  1. GLUCOVANCE                         /01182201/ [Concomitant]
     Dosage: UNK D/F, 2/D
     Dates: start: 20060622
  2. LANTUS [Concomitant]
     Dosage: 20 U, UNKNOWN
     Dates: start: 20011211
  3. BYETTA [Suspect]
     Indication: TYPE 2 DIABETES MELLITUS
     Dosage: 5 UG, UNK
     Route: 058
     Dates: start: 20060712, end: 20060724

REACTIONS (2)
  - INJECTION SITE RASH [None]
  - LOSS OF CONSCIOUSNESS [None]
